FAERS Safety Report 13079132 (Version 3)
Quarter: 2018Q3

REPORT INFORMATION
  Report Type: Report from Study
  Country: DE (occurrence: DE)
  Receive Date: 20170102
  Receipt Date: 20180706
  Transmission Date: 20181010
  Serious: Yes (Hospitalization)
  Sender: FDA-Public Use
  Company Number: DE-ROCHE-1874380

PATIENT
  Age: 72 Year
  Sex: Female

DRUGS (18)
  1. DEKRISTOL [Concomitant]
     Active Substance: CHOLECALCIFEROL
  2. LEVEMIR [Concomitant]
     Active Substance: INSULIN DETEMIR
  3. BUDIAIR [Concomitant]
     Active Substance: BUDESONIDE
  4. ESOMEP [Concomitant]
     Active Substance: ESOMEPRAZOLE
  5. PANTOPRAZOL [Concomitant]
     Active Substance: PANTOPRAZOLE SODIUM
  6. TOCILIZUMAB. [Suspect]
     Active Substance: TOCILIZUMAB
     Indication: RHEUMATOID ARTHRITIS
     Route: 058
     Dates: end: 20160625
  7. METHOTREXATE. [Suspect]
     Active Substance: METHOTREXATE
     Indication: RHEUMATOID ARTHRITIS
     Route: 065
     Dates: end: 201610
  8. ACTRAPID [Concomitant]
     Active Substance: INSULIN HUMAN
  9. TOCILIZUMAB. [Suspect]
     Active Substance: TOCILIZUMAB
     Route: 058
     Dates: start: 20160715
  10. PREDNISOLON [Concomitant]
     Active Substance: PREDNISOLONE
  11. RALOXIFENE. [Concomitant]
     Active Substance: RALOXIFENE
  12. TILIDIN COMP [Concomitant]
     Active Substance: NALOXONE HYDROCHLORIDE\TILIDINE HYDROCHLORIDE
  13. PROTAPHANE [Concomitant]
     Active Substance: INSULIN HUMAN
  14. CELECOXIB. [Concomitant]
     Active Substance: CELECOXIB
  15. VALSARTAN. [Concomitant]
     Active Substance: VALSARTAN
  16. NOVAMINSULFON [Concomitant]
     Active Substance: METAMIZOLE
     Route: 065
  17. FOLIC ACID. [Concomitant]
     Active Substance: FOLIC ACID
  18. RISEDRONIC ACID [Concomitant]
     Active Substance: RISEDRONIC ACID

REACTIONS (4)
  - Rheumatoid arthritis [Not Recovered/Not Resolved]
  - Pneumonia [Unknown]
  - Rheumatoid arthritis [Not Recovered/Not Resolved]
  - Pleurisy [Unknown]

NARRATIVE: CASE EVENT DATE: 201612
